FAERS Safety Report 5878830-9 (Version None)
Quarter: 2008Q3

REPORT INFORMATION
  Report Type: 
  Country: None (occurrence: None)
  Receive Date: 20080910
  Receipt Date: 20080910
  Transmission Date: 20090109
  Serious: No
  Sender: FDA-Public Use
  Company Number: None

PATIENT
  Age: 46 Year
  Sex: Female
  Weight: 56.6996 kg

DRUGS (1)
  1. CHANTIX [Suspect]

REACTIONS (6)
  - INSOMNIA [None]
  - MAJOR DEPRESSION [None]
  - MOOD SWINGS [None]
  - NERVOUSNESS [None]
  - NIGHTMARE [None]
  - TREMOR [None]
